FAERS Safety Report 20497075 (Version 1)
Quarter: 2022Q1

REPORT INFORMATION
  Report Type: Spontaneous
  Country: US (occurrence: US)
  Receive Date: 20220221
  Receipt Date: 20220221
  Transmission Date: 20220423
  Serious: Yes (Other)
  Sender: FDA-Public Use
  Company Number: US-TAKEDA-2022TUS009727

PATIENT
  Sex: Female
  Weight: 56 kg

DRUGS (3)
  1. LIALDA [Suspect]
     Active Substance: MESALAMINE
     Indication: Colitis ulcerative
     Dosage: 1.2 DOSAGE FORM, QD
     Route: 065
  2. ALENDRONATE SODIUM [Concomitant]
     Active Substance: ALENDRONATE SODIUM
     Indication: Osteoporosis
  3. VYZULTA [Concomitant]
     Active Substance: LATANOPROSTENE BUNOD
     Indication: Glaucoma

REACTIONS (6)
  - Precancerous condition [Unknown]
  - Epigastric discomfort [Unknown]
  - Taste disorder [Unknown]
  - COVID-19 [Unknown]
  - Weight decreased [Unknown]
  - Incorrect dose administered [Unknown]
